FAERS Safety Report 11117397 (Version 2)
Quarter: 2015Q2

REPORT INFORMATION
  Report Type: Spontaneous
  Country: AU (occurrence: AU)
  Receive Date: 20150516
  Receipt Date: 20150522
  Transmission Date: 20150821
  Serious: Yes (Death)
  Sender: FDA-Public Use
  Company Number: AU-ABBVIE-15K-008-1392480-00

PATIENT
  Age: 39 Year
  Sex: Male
  Weight: 76 kg

DRUGS (1)
  1. HUMIRA [Suspect]
     Active Substance: ADALIMUMAB
     Indication: CROHN^S DISEASE
     Route: 065
     Dates: start: 20140417, end: 20150429

REACTIONS (4)
  - Completed suicide [Fatal]
  - Depression [Unknown]
  - Anxiety [Unknown]
  - Intentional overdose [Fatal]

NARRATIVE: CASE EVENT DATE: 20150429
